FAERS Safety Report 5034995-2 (Version None)
Quarter: 2006Q2

REPORT INFORMATION
  Report Type: 
  Country: None (occurrence: None)
  Receive Date: 20060627
  Receipt Date: 20060615
  Transmission Date: 20061013
  Serious: Yes (Other)
  Sender: FDA-Public Use
  Company Number: JP-JNJFOC-20060502344

PATIENT
  Sex: Female

DRUGS (5)
  1. RISPERDAL [Suspect]
     Indication: DEMENTIA ALZHEIMER'S TYPE
     Route: 048
     Dates: start: 20060414, end: 20060428
  2. RISPERDAL [Suspect]
     Indication: CEREBRAL HAEMORRHAGE
     Route: 048
     Dates: start: 20060414, end: 20060428
  3. TRAZODONE HCL [Concomitant]
     Indication: DEMENTIA ALZHEIMER'S TYPE
     Route: 048
  4. TRAZODONE HCL [Concomitant]
     Indication: CEREBRAL HAEMORRHAGE
     Route: 048
  5. IFENPRODIL TARTRATE [Concomitant]
     Indication: CEREBRAL HAEMORRHAGE
     Route: 048

REACTIONS (1)
  - SUBILEUS [None]
